FAERS Safety Report 8850799 (Version 2)
Quarter: 2012Q4

REPORT INFORMATION
  Report Type: Report from Study
  Country: DE (occurrence: DE)
  Receive Date: 20121019
  Receipt Date: 20121106
  Transmission Date: 20130627
  Serious: Yes (Hospitalization)
  Sender: FDA-Public Use
  Company Number: DE-BRISTOL-MYERS SQUIBB COMPANY-17047218

PATIENT
  Age: 65 Year
  Sex: Male

DRUGS (3)
  1. IPILIMUMAB [Suspect]
     Indication: MALIGNANT MELANOMA
     Dosage: No of course-2.
     Route: 042
     Dates: start: 20120604, end: 20120806
  2. REMICADE [Concomitant]
     Indication: DIARRHOEA
     Dates: start: 20120825
  3. PREDNISOLONE [Concomitant]
     Dosage: 1mg/kg.Ongoing, also taken 140mg IV:07Oct2012
     Dates: start: 20120716

REACTIONS (1)
  - Colitis [Not Recovered/Not Resolved]
